FAERS Safety Report 7343142-3 (Version None)
Quarter: 2011Q1

REPORT INFORMATION
  Report Type: 
  Country: None (occurrence: None)
  Receive Date: 20110310
  Receipt Date: 20110308
  Transmission Date: 20110831
  Serious: Yes (Other)
  Sender: FDA-Public Use
  Company Number: US-AMGEN-QUU436036

PATIENT
  Age: 69 Year
  Sex: Male

DRUGS (4)
  1. ATENOLOL [Concomitant]
     Dosage: 25 MG, QD
  2. NPLATE [Suspect]
     Indication: IDIOPATHIC THROMBOCYTOPENIC PURPURA
     Dosage: 10 A?G/KG, UNK
     Dates: start: 20080701
  3. CYANOCOBALAMIN [Concomitant]
     Dosage: UNK UNK, UNK
  4. PYRIDOSTIGMINE BROMIDE [Concomitant]
     Dosage: 500 MG, QD

REACTIONS (1)
  - THERAPEUTIC RESPONSE DECREASED [None]
